FAERS Safety Report 5869932-1 (Version None)
Quarter: 2008Q3

REPORT INFORMATION
  Report Type: 
  Country: None (occurrence: None)
  Receive Date: 20080904
  Receipt Date: 20080827
  Transmission Date: 20090109
  Serious: Yes (Hospitalization)
  Sender: FDA-Public Use
  Company Number: PHHY2008MT19237

PATIENT
  Age: 76 Year
  Sex: Male

DRUGS (2)
  1. DIOVAN [Suspect]
     Indication: HYPERTENSION
     Dosage: UNK
     Route: 048
     Dates: end: 20080801
  2. COVERSYL [Suspect]
     Indication: HYPERTENSION
     Dosage: UNK
     Route: 048

REACTIONS (3)
  - BLOOD CREATININE INCREASED [None]
  - CARDIAC OPERATION [None]
  - RENAL FAILURE ACUTE [None]
